FAERS Safety Report 9496745 (Version 1)
Quarter: 2013Q3

REPORT INFORMATION
  Report Type: Spontaneous
  Country: US (occurrence: None)
  Receive Date: 20130903
  Receipt Date: 20130903
  Transmission Date: 20140515
  Serious: No
  Sender: FDA-Public Use
  Company Number: None

PATIENT
  Age: 40 Year
  Sex: Male
  Weight: 133.81 kg

DRUGS (4)
  1. RAMIPRIL [Suspect]
     Indication: HYPERTENSION
     Dosage: 10 MG 1 PILL ONCE DAILY BY MOUTH
     Route: 048
     Dates: start: 20130808, end: 20130810
  2. CHOREG [Concomitant]
  3. MULTIVITAMIN [Concomitant]
  4. NIACIN [Concomitant]

REACTIONS (1)
  - Hypersensitivity [None]
